FAERS Safety Report 5291472-1 (Version None)
Quarter: 2007Q2

REPORT INFORMATION
  Report Type: 
  Country: None (occurrence: None)
  Receive Date: 20070403
  Receipt Date: 20070321
  Transmission Date: 20071010
  Serious: No
  Sender: FDA-Public Use
  Company Number: 07-000635

PATIENT
  Age: 58 Year
  Sex: Female
  Weight: 52.2 kg

DRUGS (7)
  1. FEMRING [Suspect]
     Indication: PRURITUS GENITAL
     Dosage: 0.05 MG, QD, VAGINAL
     Route: 067
     Dates: start: 20050101
  2. FEMRING [Suspect]
     Indication: VULVOVAGINAL DRYNESS
     Dosage: 0.05 MG, QD, VAGINAL
     Route: 067
     Dates: start: 20050101
  3. SYNTHROID [Concomitant]
  4. ESTRADIOL [Concomitant]
  5. PROMETRIUM [Concomitant]
  6. PROTONIX /01263201/ (PANTOPRAZOLE) [Concomitant]
  7. PREMARIN /00073001/ (ESTROGENS CONJUGATED) [Concomitant]

REACTIONS (5)
  - CYSTITIS INTERSTITIAL [None]
  - DRUG INEFFECTIVE [None]
  - PRURITUS GENITAL [None]
  - VULVOVAGINAL DRYNESS [None]
  - WEIGHT DECREASED [None]
